FAERS Safety Report 10236365 (Version 1)
Quarter: 2014Q1

REPORT INFORMATION
  Report Type: Spontaneous
  Country: US (occurrence: None)
  Receive Date: 20140306
  Receipt Date: 20140306
  Transmission Date: 20141002
  Serious: Yes (Other)
  Sender: FDA-Public Use
  Company Number: 163-21880-13041727

PATIENT
  Age: 62 Year
  Sex: Female

DRUGS (12)
  1. REVLIMID (LENALIDOMIDE) (25 MILLIGRAM, CAPSULES) [Suspect]
     Indication: PLASMA CELL MYELOMA
     Dosage: 25MG, 1 IN 1D, PO
     Route: 048
     Dates: start: 200910, end: 2012
  2. ZOMETA (ZOLEDRONIC ACID) (INJECTION) [Suspect]
     Indication: PRODUCT USED FOR UNKNOWN INDICATION
     Dosage: NOT PROVIDED IV
     Route: 042
     Dates: start: 20130104
  3. TAMIFLU (OSELTAMIVIR) [Concomitant]
  4. MUCINEX (GUAIFENESIN) [Concomitant]
  5. FAMVIR (FAMCICLOVIR) [Concomitant]
  6. BACTRIM DS (BACTRIM) [Concomitant]
  7. TOVIAZ (FESOTERODINE FUMARATE) [Concomitant]
  8. CALCIUM WITH VITAMIN D (CALCIUM WITH VITAMIN D) [Concomitant]
  9. LASIX (FUROSEMIDE) [Concomitant]
  10. KCL (POTASSIUM CHLORIDE) [Concomitant]
  11. DECADRON (DEXAMETHASONE) [Concomitant]
  12. VELCADE (BORTEZOMIB) [Concomitant]

REACTIONS (3)
  - Renal failure [None]
  - Influenza [None]
  - Plasma cell myeloma [None]
